FAERS Safety Report 5074097-2 (Version None)
Quarter: 2006Q3

REPORT INFORMATION
  Report Type: 
  Country: None (occurrence: None)
  Receive Date: 20060803
  Receipt Date: 20060727
  Transmission Date: 20061208
  Serious: Yes (Life-Threatening, Hospitalization)
  Sender: FDA-Public Use
  Company Number: 2006-04199

PATIENT
  Age: 50 Year
  Sex: Male

DRUGS (11)
  1. CHLORDIAZEPOXIDE/AMITRIPTYLINE HCL (UNK STRENGTH) WATSON LABORATORIES( [Suspect]
     Indication: DEPRESSION
  2. CYCLOBENZAPRINE HYDROCHLORIDE (WATSON LABORATORIES)(CYCLOBENZAPRINE HY [Suspect]
     Indication: DRUG USE FOR UNKNOWN INDICATION
  3. METOPROLOL (WATSON LABORATORIES) (METOPROLOL TARTRATE) TABLET [Suspect]
     Indication: DRUG USE FOR UNKNOWN INDICATION
  4. MEPIVACAINE HCL [Suspect]
     Indication: BRONCHIAL DISORDER
     Dosage: 45 ML, SINGLE, INTRAVENOUS
     Route: 042
  5. SERTRALINE [Suspect]
     Indication: BRONCHIAL DISORDER
  6. CAFFEINE(CAFFEINE) [Suspect]
     Indication: MEDICAL DIET
  7. GRAPEFRUIT JUICE (ITRUS PARADISI FRUIT JUICE) [Suspect]
     Indication: MEDICAL DIET
     Dosage: 6 ML, 1/WEEK
  8. TETRACAINE (TETRACAINE) [Concomitant]
  9. EPINEPHRINE [Concomitant]
  10. OMEPRAZOLE [Concomitant]
  11. NIFEDIPINE [Concomitant]

REACTIONS (5)
  - ATRIOVENTRICULAR BLOCK THIRD DEGREE [None]
  - CARDIAC ARREST [None]
  - DRUG INTERACTION [None]
  - HYPOTENSION [None]
  - PROCEDURAL COMPLICATION [None]
